FAERS Safety Report 20768979 (Version 1)
Quarter: 2022Q2

REPORT INFORMATION
  Report Type: Spontaneous
  Country: US (occurrence: US)
  Receive Date: 20220429
  Receipt Date: 20220429
  Transmission Date: 20220720
  Serious: No
  Sender: FDA-Public Use
  Company Number: US-TARO-2022TAR00247

PATIENT

DRUGS (2)
  1. FLUOROURACIL [Suspect]
     Active Substance: FLUOROURACIL
     Indication: Precancerous condition
     Dosage: UNK, ON ARMS
     Route: 061
  2. FLUOROURACIL [Suspect]
     Active Substance: FLUOROURACIL
     Dosage: UNK, ON FACE
     Route: 061

REACTIONS (2)
  - Feeling abnormal [Not Recovered/Not Resolved]
  - Lip blister [Not Recovered/Not Resolved]
